FAERS Safety Report 10023171 (Version 1)
Quarter: 2014Q1

REPORT INFORMATION
  Report Type: Spontaneous
  Country: GB (occurrence: GB)
  Receive Date: 20140320
  Receipt Date: 20140320
  Transmission Date: 20141002
  Serious: Yes (Hospitalization)
  Sender: FDA-Public Use
  Company Number: GB-PFIZER INC-2014077601

PATIENT
  Age: 52 Year
  Sex: Male

DRUGS (8)
  1. IRINOTECAN HCL [Suspect]
     Indication: PANCREATIC CARCINOMA
  2. FLUOROURACIL [Suspect]
     Indication: PANCREATIC CARCINOMA
     Dosage: UNK
  3. OXALIPLATIN [Suspect]
     Indication: PANCREATIC CARCINOMA
     Dosage: UNK
  4. FOLINIC ACID [Suspect]
     Indication: PANCREATIC CARCINOMA
     Dosage: UNK
  5. GLICLAZIDE [Concomitant]
     Dosage: 40 MG, 1X/DAY
     Route: 048
  6. METFORMIN [Concomitant]
     Dosage: 500 MG, 2X/DAY
  7. PERINDOPRIL [Concomitant]
     Dosage: 8 MG, 1X/DAY
     Route: 048
  8. TRAMADOL [Concomitant]

REACTIONS (2)
  - Pneumocystis jirovecii pneumonia [Not Recovered/Not Resolved]
  - Influenza [Unknown]
